FAERS Safety Report 15681116 (Version 2)
Quarter: 2018Q4

REPORT INFORMATION
  Report Type: Spontaneous
  Country: ES (occurrence: ES)
  Receive Date: 20181203
  Receipt Date: 20181212
  Transmission Date: 20190205
  Serious: Yes (Other)
  Sender: FDA-Public Use
  Company Number: ES-JNJFOC-20181136111

PATIENT
  Age: 9 Year
  Sex: Male
  Weight: 34 kg

DRUGS (6)
  1. CETIRIZINA TEVA [Concomitant]
     Active Substance: CETIRIZINE HYDROCHLORIDE
     Indication: HYPERSENSITIVITY
     Dosage: 1 120 ML BOTTLE, 5 ML WITH BREAKFAST AND BEFORE GOING TO SLEEP
     Route: 048
     Dates: start: 20181019, end: 20181119
  2. AERIUS (DESLORATADINE) [Concomitant]
     Active Substance: DESLORATADINE
     Indication: HYPERSENSITIVITY
     Dosage: 1 120 ML BOTTLE
     Route: 048
     Dates: start: 20180411
  3. ZADITEN [Concomitant]
     Active Substance: KETOTIFEN FUMARATE
     Indication: EYE PAIN
     Dosage: 2 DROPS EVERY 12 HOURS, DEPENDING ON EYE ITCHING. 20 0.4 ML SINGLE DOSE PACKAGING.
     Route: 065
     Dates: start: 20180425
  4. RISPERDAL [Suspect]
     Active Substance: RISPERIDONE
     Indication: DISTURBANCE IN SOCIAL BEHAVIOUR
     Dosage: 1 30 ML BOTTLE??0.25ML IN THE MORNING, ONLY WHEN THE CHILD HAS TO GO TO SCHOOL.
     Route: 048
     Dates: start: 20180207
  5. POLARAMINE [Concomitant]
     Active Substance: DEXCHLORPHENIRAMINE MALEATE
     Indication: URTICARIA
     Dosage: 1 60 ML BOTTLE
     Route: 065
     Dates: start: 20181015, end: 20181020
  6. LEXXEMA [Concomitant]
     Indication: HYPERSENSITIVITY
     Dosage: 1 APPLICATION EVERY 24 HOURS ON THE INJURES
     Route: 065
     Dates: start: 20180411

REACTIONS (10)
  - Irritability [Not Recovered/Not Resolved]
  - Increased appetite [Not Recovered/Not Resolved]
  - Akathisia [Not Recovered/Not Resolved]
  - Eye pain [Not Recovered/Not Resolved]
  - Ocular hyperaemia [Recovering/Resolving]
  - Dermatitis allergic [Not Recovered/Not Resolved]
  - Anxiety [Not Recovered/Not Resolved]
  - Somnolence [Not Recovered/Not Resolved]
  - Flushing [Not Recovered/Not Resolved]
  - Unresponsive to stimuli [Not Recovered/Not Resolved]

NARRATIVE: CASE EVENT DATE: 20180221
